FAERS Safety Report 9617963 (Version 3)
Quarter: 2013Q4

REPORT INFORMATION
  Report Type: Report from Study
  Country: BR (occurrence: BR)
  Receive Date: 20131011
  Receipt Date: 20131222
  Transmission Date: 20140711
  Serious: Yes (Other)
  Sender: FDA-Public Use
  Company Number: PHHY2013BR111467

PATIENT
  Sex: Female

DRUGS (6)
  1. GALVUS [Suspect]
     Indication: DIABETES MELLITUS
     Dosage: 1 DF, (50 MG DAILY)
     Route: 048
     Dates: end: 201311
  2. GALVUS [Suspect]
     Dosage: 2 DF, (50 MG) DAILY
     Route: 048
  3. METFORMIN [Suspect]
     Dosage: 850 MG, UNK
     Dates: end: 201311
  4. GALVUS MET [Suspect]
     Indication: DIABETES MELLITUS
     Dosage: 2 DF, (1000 ME MET/50 MG VILDA) DAILY
     Route: 048
     Dates: start: 201311
  5. DIOVAN HCT [Suspect]
     Indication: HYPERTENSION
     Dosage: 1 DF, (320 MG VALS/ 12.5MG HCT) DAILY
     Route: 048
  6. DAONIL [Suspect]

REACTIONS (10)
  - Tendonitis [Recovered/Resolved]
  - Tendon rupture [Not Recovered/Not Resolved]
  - Osteoarthritis [Not Recovered/Not Resolved]
  - Arthritis [Not Recovered/Not Resolved]
  - Memory impairment [Not Recovered/Not Resolved]
  - Confusional state [Recovering/Resolving]
  - Nervousness [Not Recovered/Not Resolved]
  - Dysstasia [Not Recovered/Not Resolved]
  - Weight increased [Not Recovered/Not Resolved]
  - Tremor [Not Recovered/Not Resolved]
